FAERS Safety Report 10611046 (Version 1)
Quarter: 2014Q4

REPORT INFORMATION
  Report Type: Spontaneous
  Country: US (occurrence: US)
  Receive Date: 20141126
  Receipt Date: 20141126
  Transmission Date: 20150529
  Serious: No
  Sender: FDA-Public Use
  Company Number: US-MALLINCKRODT-T201403676

PATIENT
  Age: 27 Year
  Sex: Male

DRUGS (5)
  1. GABLOFEN [Suspect]
     Active Substance: BACLOFEN
     Dosage: 720 MCG/DAY
     Route: 037
     Dates: start: 20140623, end: 20140708
  2. GABLOFEN [Suspect]
     Active Substance: BACLOFEN
     Dosage: 960 MCG/DAY
     Route: 037
     Dates: start: 201401, end: 20140601
  3. GABLOFEN [Suspect]
     Active Substance: BACLOFEN
     Dosage: 899 MCG/DAY
     Route: 037
     Dates: start: 20140601, end: 20140623
  4. GABLOFEN [Suspect]
     Active Substance: BACLOFEN
     Dosage: 580 MCG/DAY
     Route: 037
     Dates: start: 20140708
  5. GABLOFEN [Suspect]
     Active Substance: BACLOFEN
     Indication: MUSCLE SPASTICITY
     Dosage: UNK
     Route: 037

REACTIONS (4)
  - Pain [Unknown]
  - Posture abnormal [Unknown]
  - Dyskinesia [Unknown]
  - Muscle spasticity [Unknown]

NARRATIVE: CASE EVENT DATE: 201312
